FAERS Safety Report 25334830 (Version 1)
Quarter: 2025Q2

REPORT INFORMATION
  Report Type: Spontaneous
  Country: US (occurrence: US)
  Receive Date: 20250520
  Receipt Date: 20250520
  Transmission Date: 20250716
  Serious: No
  Sender: CURIUM PHARMACEUTICALS
  Company Number: US-CURIUM-2024001052

PATIENT
  Age: 77 Year
  Sex: Female
  Weight: 56.2 kg

DRUGS (3)
  1. DETECTNET [Suspect]
     Active Substance: COPPER OXODOTREOTIDE CU-64
     Indication: Scan
     Route: 042
     Dates: start: 20230720, end: 20230720
  2. DETECTNET [Suspect]
     Active Substance: COPPER OXODOTREOTIDE CU-64
     Indication: Scan
     Route: 042
     Dates: start: 20240108, end: 20240108
  3. DETECTNET [Suspect]
     Active Substance: COPPER OXODOTREOTIDE CU-64
     Indication: Scan
     Route: 042
     Dates: start: 20240524, end: 20240524

REACTIONS (1)
  - Diarrhoea [Unknown]

NARRATIVE: CASE EVENT DATE: 20230720
